FAERS Safety Report 5876947-6 (Version None)
Quarter: 2008Q3

REPORT INFORMATION
  Report Type: 
  Country: None (occurrence: None)
  Receive Date: 20080908
  Receipt Date: 20080908
  Transmission Date: 20090109
  Serious: No
  Sender: FDA-Public Use
  Company Number: None

PATIENT
  Sex: Female
  Weight: 58.9676 kg

DRUGS (2)
  1. PREMARIN [Suspect]
     Indication: MENOPAUSE
     Dosage: 2  X2 DAILY PO
     Route: 048
  2. PREMARIN [Suspect]
     Indication: POST PROCEDURAL COMPLICATION
     Dosage: 2  X2 DAILY PO
     Route: 048

REACTIONS (1)
  - DRUG EFFECT DECREASED [None]
